FAERS Safety Report 5397374-4 (Version None)
Quarter: 2007Q3

REPORT INFORMATION
  Report Type: 
  Country: None (occurrence: None)
  Receive Date: 20070726
  Receipt Date: 20070723
  Transmission Date: 20080115
  Serious: Yes (Other)
  Sender: FDA-Public Use
  Company Number: PHEH2007US06735

PATIENT
  Age: 74 Year
  Sex: Male

DRUGS (16)
  1. ELIDEL [Suspect]
     Indication: ECZEMA
     Dosage: THIN LAYER, QD
     Route: 061
     Dates: start: 20020101, end: 20070501
  2. ELIDEL [Suspect]
     Dosage: UNK, PRN
     Route: 061
     Dates: start: 20070501
  3. ELIDEL [Suspect]
     Dosage: UNK, BID
     Route: 061
  4. ADVAIR DISKUS 100/50 [Suspect]
  5. PERIDEX [Suspect]
     Dosage: 0.12 %, UNK
     Dates: start: 20050101
  6. DENTAL TREATMENT [Suspect]
  7. ACETYLSALICYLATE [Concomitant]
     Route: 048
  8. AMBIEN [Concomitant]
     Route: 048
  9. DIOVAN [Concomitant]
     Route: 048
  10. AMARYL [Concomitant]
     Route: 048
  11. ZOCOR [Concomitant]
     Route: 048
  12. ISORBIDE [Concomitant]
     Route: 048
  13. PLAVIX [Concomitant]
     Route: 048
  14. PLENDIL [Concomitant]
     Route: 048
  15. ATIVAN [Concomitant]
     Route: 048
  16. GLUCOPHAGE [Concomitant]
     Route: 048

REACTIONS (11)
  - DYSPHONIA [None]
  - ERYTHEMA [None]
  - LARYNGEAL OEDEMA [None]
  - LARYNGITIS [None]
  - PHARYNGOLARYNGEAL PAIN [None]
  - PNEUMONIA [None]
  - PRURITUS [None]
  - RASH ERYTHEMATOUS [None]
  - RASH PAPULAR [None]
  - RESPIRATORY TRACT INFECTION [None]
  - SKIN EXFOLIATION [None]
